FAERS Safety Report 9506440 (Version 1)
Quarter: 2013Q1

REPORT INFORMATION
  Report Type: Spontaneous
  Country: US (occurrence: None)
  Receive Date: 20130301
  Receipt Date: 20130301
  Transmission Date: 20140127
  Serious: Yes (Hospitalization)
  Sender: FDA-Public Use
  Company Number: US-JNJFOC-20120105901

PATIENT
  Sex: Male
  Weight: 75.75 kg

DRUGS (1)
  1. MOTRIN IB [Suspect]
     Indication: PAIN IN JAW
     Route: 048
     Dates: start: 20070720, end: 200707

REACTIONS (2)
  - Gastric haemorrhage [None]
  - Haematemesis [None]
